FAERS Safety Report 12856451 (Version 1)
Quarter: 2016Q4

REPORT INFORMATION
  Report Type: Spontaneous
  Country: US (occurrence: US)
  Receive Date: 20161018
  Receipt Date: 20161018
  Transmission Date: 20170207
  Serious: Yes (Other)
  Sender: FDA-Public Use
  Company Number: None

PATIENT
  Age: 66 Year
  Sex: Male
  Weight: 108.86 kg

DRUGS (1)
  1. ATORVASTATIN [Suspect]
     Active Substance: ATORVASTATIN
     Indication: BLOOD CHOLESTEROL
     Route: 048
     Dates: start: 20160422, end: 20160901

REACTIONS (5)
  - Pain [None]
  - Swelling [None]
  - Tendon disorder [None]
  - Gait disturbance [None]
  - Contusion [None]

NARRATIVE: CASE EVENT DATE: 20160819
